FAERS Safety Report 20794643 (Version 1)
Quarter: 2022Q2

REPORT INFORMATION
  Report Type: Spontaneous
  Country: US (occurrence: US)
  Receive Date: 20220506
  Receipt Date: 20220506
  Transmission Date: 20220721
  Serious: No
  Sender: FDA-Public Use
  Company Number: US-UCBSA-2021046740

PATIENT
  Sex: Female

DRUGS (2)
  1. CIMZIA [Suspect]
     Active Substance: CERTOLIZUMAB PEGOL
     Indication: Crohn^s disease
     Dosage: 400 MILLIGRAM, EV 2 WEEKS(QOW)
     Route: 058
     Dates: start: 20210714
  2. CIMZIA [Suspect]
     Active Substance: CERTOLIZUMAB PEGOL
     Dosage: 400 MILLIGRAM, EV 4 WEEKS
     Route: 058
     Dates: start: 202109

REACTIONS (9)
  - Tongue discomfort [Unknown]
  - Ageusia [Unknown]
  - Oropharyngeal pain [Unknown]
  - Infection [Unknown]
  - Crohn^s disease [Unknown]
  - Nausea [Unknown]
  - Eating disorder [Unknown]
  - Laryngitis [Unknown]
  - Adverse drug reaction [Unknown]
